FAERS Safety Report 17574507 (Version 2)
Quarter: 2020Q2

REPORT INFORMATION
  Report Type: Report from Study
  Country: US (occurrence: US)
  Receive Date: 20200324
  Receipt Date: 20200401
  Transmission Date: 20200713
  Serious: Yes (Hospitalization)
  Sender: FDA-Public Use
  Company Number: US-ROCHE-2566509

PATIENT
  Age: 44 Year
  Sex: Female

DRUGS (1)
  1. ATEZOLIZUMAB. [Suspect]
     Active Substance: ATEZOLIZUMAB
     Indication: CERVIX CANCER METASTATIC
     Dosage: DATE OF MOST RECENT DOSE (200 MG) OF ATEZOLIZUMAB PRIOR TO SAE: 29/JAN/2020
     Route: 042
     Dates: start: 20191230

REACTIONS (1)
  - Acute kidney injury [Recovered/Resolved]

NARRATIVE: CASE EVENT DATE: 20200220
